FAERS Safety Report 15105523 (Version 1)
Quarter: 2018Q3

REPORT INFORMATION
  Report Type: Report from Study
  Country: US (occurrence: US)
  Receive Date: 20180704
  Receipt Date: 20180704
  Transmission Date: 20181010
  Serious: Yes (Hospitalization, Other)
  Sender: FDA-Public Use
  Company Number: US-JNJFOC-20180329192

PATIENT
  Sex: Female
  Weight: 47.63 kg

DRUGS (2)
  1. STELARA [Suspect]
     Active Substance: USTEKINUMAB
     Indication: CROHN^S DISEASE
     Route: 042
     Dates: start: 20171128, end: 20171128
  2. STELARA [Suspect]
     Active Substance: USTEKINUMAB
     Indication: CROHN^S DISEASE
     Route: 042

REACTIONS (6)
  - Kidney infection [Unknown]
  - Pruritus [Unknown]
  - Renal cyst [Unknown]
  - Drug effect decreased [Unknown]
  - Crohn^s disease [Unknown]
  - Dehydration [Unknown]

NARRATIVE: CASE EVENT DATE: 201805
